FAERS Safety Report 6254919-X (Version None)
Quarter: 2009Q3

REPORT INFORMATION
  Report Type: 
  Country: None (occurrence: None)
  Receive Date: 20090702
  Receipt Date: 20080813
  Transmission Date: 20100115
  Serious: Yes (Other)
  Sender: FDA-Public Use
  Company Number: A0395998A

PATIENT
  Age: 24 Year
  Sex: Male

DRUGS (5)
  1. PARNATE [Suspect]
     Indication: DEPRESSION
     Dosage: 10MG SEE DOSAGE TEXT
     Route: 048
     Dates: start: 19980101
  2. NEURONTIN [Concomitant]
  3. VITAMINS [Concomitant]
  4. HERBAL SUPPLEMENTS [Concomitant]
  5. KLONOPIN [Concomitant]

REACTIONS (7)
  - BLOOD PRESSURE INCREASED [None]
  - DRUG INEFFECTIVE [None]
  - ENERGY INCREASED [None]
  - HEADACHE [None]
  - INSOMNIA [None]
  - MANIA [None]
  - OVERDOSE [None]
